FAERS Safety Report 4416957-9 (Version None)
Quarter: 2004Q3

REPORT INFORMATION
  Report Type: 
  Country: None (occurrence: None)
  Receive Date: 20040806
  Receipt Date: 20030627
  Transmission Date: 20050211
  Serious: No
  Sender: FDA-Public Use
  Company Number: US-GLAXOSMITHKLINE-A0414334A

PATIENT
  Sex: Female

DRUGS (1)
  1. STELAZINE [Suspect]
     Indication: ANXIETY
     Dosage: 1MG PER DAY
     Route: 048
     Dates: start: 19850101, end: 19960101

REACTIONS (4)
  - HYPERTROPHY BREAST [None]
  - INCREASED APPETITE [None]
  - SOMNOLENCE [None]
  - TACHYCARDIA [None]
